FAERS Safety Report 9269235 (Version 1)
Quarter: 2013Q2

REPORT INFORMATION
  Report Type: Spontaneous
  Country: US (occurrence: US)
  Receive Date: 20130503
  Receipt Date: 20130503
  Transmission Date: 20140414
  Serious: Yes (Other)
  Sender: FDA-Public Use
  Company Number: US-BAYER-2013-052471

PATIENT
  Age: 17 Year
  Sex: Female

DRUGS (2)
  1. MIRENA [Suspect]
     Indication: CONTRACEPTION
     Dosage: 20 MCG/24HR, CONT
     Route: 015
     Dates: start: 20130218, end: 20130422
  2. ANALGESICS [Concomitant]

REACTIONS (5)
  - Uterine perforation [None]
  - Post procedural haemorrhage [None]
  - Abdominal pain lower [None]
  - Abdominal distension [None]
  - Procedural pain [None]
